FAERS Safety Report 9343975 (Version 1)
Quarter: 2013Q2

REPORT INFORMATION
  Report Type: Report from Study
  Country: US (occurrence: US)
  Receive Date: 20130612
  Receipt Date: 20130612
  Transmission Date: 20140414
  Serious: Yes (Death)
  Sender: FDA-Public Use
  Company Number: PHEH2013US012649

PATIENT
  Age: 73 Year
  Sex: Male

DRUGS (7)
  1. GLEEVEC [Suspect]
     Indication: CHRONIC MYELOID LEUKAEMIA
     Dosage: 400 MG, DAILY
     Route: 048
     Dates: start: 20120206, end: 20130606
  2. SIMVASTATIN [Concomitant]
     Dosage: UNK UKN, UNK
  3. LEXAPRO [Concomitant]
     Dosage: UNK UKN, UNK
  4. FUROSEMIDE [Concomitant]
     Dosage: UNK UKN, UNK
  5. WARFARIN [Concomitant]
     Dosage: UNK UKN, UNK
  6. PLAVIX [Concomitant]
     Dosage: UNK UKN, UNK
  7. COREG [Concomitant]
     Dosage: UNK UKN, UNK

REACTIONS (1)
  - Death [Fatal]
